FAERS Safety Report 20903363 (Version 3)
Quarter: 2022Q2

REPORT INFORMATION
  Report Type: Spontaneous
  Country: JP (occurrence: JP)
  Receive Date: 20220601
  Receipt Date: 20220623
  Transmission Date: 20220720
  Serious: Yes (Other)
  Sender: FDA-Public Use
  Company Number: JP-JNJFOC-20220561672

PATIENT
  Age: 52 Year
  Sex: Female

DRUGS (5)
  1. OPSUMIT [Suspect]
     Active Substance: MACITENTAN
     Indication: Pulmonary arterial hypertension
     Route: 048
  2. UPTRAVI [Suspect]
     Active Substance: SELEXIPAG
     Indication: Pulmonary arterial hypertension
     Route: 048
     Dates: end: 202204
  3. UPTRAVI [Suspect]
     Active Substance: SELEXIPAG
     Indication: Pulmonary arterial hypertension
     Route: 048
     Dates: start: 202204
  4. ADCIRCA [Concomitant]
     Active Substance: TADALAFIL
     Indication: Pulmonary arterial hypertension
     Route: 048
  5. BERAPROST SODIUM [Concomitant]
     Active Substance: BERAPROST SODIUM
     Route: 048

REACTIONS (2)
  - Hypokalaemia [Recovering/Resolving]
  - Oedema [Not Recovered/Not Resolved]
